FAERS Safety Report 6242610-5 (Version None)
Quarter: 2009Q2

REPORT INFORMATION
  Report Type: 
  Country: None (occurrence: None)
  Receive Date: 20090622
  Receipt Date: 20090622
  Transmission Date: 20091009
  Serious: No
  Sender: FDA-Public Use
  Company Number: None

PATIENT
  Age: 51 Year
  Sex: Female
  Weight: 74.8435 kg

DRUGS (1)
  1. ZICAM [Suspect]
     Indication: PROPHYLAXIS
     Dosage: SNIFFED IN BOTH NOSTRILS 2X, ONCE EACH DAY INHAL
     Route: 055
     Dates: start: 20090303, end: 20090304

REACTIONS (4)
  - ANOSMIA [None]
  - DYSGEUSIA [None]
  - NASAL DISCOMFORT [None]
  - SNEEZING [None]
